FAERS Safety Report 15885574 (Version 1)
Quarter: 2019Q1

REPORT INFORMATION
  Report Type: Spontaneous
  Country: RO (occurrence: RO)
  Receive Date: 20190129
  Receipt Date: 20190129
  Transmission Date: 20190417
  Serious: Yes (Hospitalization)
  Sender: FDA-Public Use
  Company Number: RO-MYLANLABS-2019M1007582

PATIENT
  Age: 62 Year
  Sex: Female

DRUGS (1)
  1. ACICLOVIR [Suspect]
     Active Substance: ACYCLOVIR
     Indication: HERPES ZOSTER
     Dosage: UNK UNK, Q8H
     Route: 061

REACTIONS (2)
  - Self-medication [Unknown]
  - Dermatitis contact [Recovering/Resolving]
